FAERS Safety Report 24071935 (Version 1)
Quarter: 2024Q3

REPORT INFORMATION
  Report Type: Spontaneous
  Country: US (occurrence: None)
  Receive Date: 20240709
  Receipt Date: 20240709
  Transmission Date: 20241017
  Serious: Yes (Life-Threatening)
  Sender: Public
  Company Number: None

PATIENT
  Age: 35 Year
  Sex: Male
  Weight: 119.25 kg

DRUGS (2)
  1. TUSSIN DM MAX [Suspect]
     Active Substance: DEXTROMETHORPHAN HYDROBROMIDE\GUAIFENESIN
     Dosage: OTHER QUANTITY : 1 TEASPOON(S);?FREQUENCY : AS NEEDED;?
     Route: 048
     Dates: start: 20240708, end: 20240709
  2. ZOLOFT [Concomitant]
     Active Substance: SERTRALINE HYDROCHLORIDE

REACTIONS (9)
  - Insomnia [None]
  - Nightmare [None]
  - Somnolence [None]
  - Hallucination [None]
  - Headache [None]
  - Restlessness [None]
  - Confusional state [None]
  - Loss of consciousness [None]
  - Therapeutic response shortened [None]

NARRATIVE: CASE EVENT DATE: 20240709
